FAERS Safety Report 4619678-2 (Version None)
Quarter: 2005Q1

REPORT INFORMATION
  Report Type: 
  Country: None (occurrence: None)
  Receive Date: 20050324
  Receipt Date: 20050307
  Transmission Date: 20050727
  Serious: Yes (Hospitalization)
  Sender: FDA-Public Use
  Company Number: CA_050307838

PATIENT
  Age: 71 Year
  Sex: Male

DRUGS (3)
  1. ZYPREXA [Suspect]
  2. RISPERIDONE [Concomitant]
  3. CLOPIXOL          (ZUCLOPENTHIXOL) [Concomitant]

REACTIONS (3)
  - CARDIOVASCULAR DISORDER [None]
  - INCONTINENCE [None]
  - PANIC ATTACK [None]
